FAERS Safety Report 5880592-6 (Version None)
Quarter: 2008Q3

REPORT INFORMATION
  Report Type: 
  Country: None (occurrence: None)
  Receive Date: 20080912
  Receipt Date: 20080604
  Transmission Date: 20090109
  Serious: No
  Sender: FDA-Public Use
  Company Number: US-ABBOTT-08P-163-0454897-00

PATIENT
  Sex: Female
  Weight: 88.53 kg

DRUGS (5)
  1. HUMIRA [Suspect]
     Indication: CROHN'S DISEASE
     Dosage: 4 INJECTIONS
     Route: 050
     Dates: start: 20080410, end: 20080410
  2. HUMIRA [Suspect]
     Route: 050
     Dates: start: 20080424, end: 20080424
  3. HUMIRA [Suspect]
     Route: 050
  4. PREDNISONE TAB [Concomitant]
     Indication: CROHN'S DISEASE
     Route: 048
     Dates: start: 20080328
  5. AZATHIOPRINE [Concomitant]
     Indication: CROHN'S DISEASE
     Route: 048
     Dates: start: 20080423

REACTIONS (2)
  - JOINT STIFFNESS [None]
  - JOINT SWELLING [None]
